FAERS Safety Report 7387456-X (Version None)
Quarter: 2011Q1

REPORT INFORMATION
  Report Type: 
  Country: None (occurrence: None)
  Receive Date: 20110331
  Receipt Date: 20110322
  Transmission Date: 20110831
  Serious: Yes (Hospitalization, Other)
  Sender: FDA-Public Use
  Company Number: US-ELI_LILLY_AND_COMPANY-US201103006853

PATIENT
  Sex: Male
  Weight: 104.31 kg

DRUGS (5)
  1. ASPIRIN [Concomitant]
     Indication: CEREBROVASCULAR ACCIDENT
     Dosage: UNK, QD
     Dates: start: 19970601
  2. HUMULIN N [Suspect]
     Indication: DIABETES MELLITUS
     Dosage: 30 U, EACH MORNING
     Dates: start: 19700101
  3. EYE DROPS [Concomitant]
     Indication: GLAUCOMA
     Dosage: UNK
     Dates: start: 20080101
  4. HUMULIN N [Suspect]
     Dosage: 16 U, EACH EVENING
     Dates: start: 19700101
  5. HUMULIN R [Suspect]
     Indication: DIABETES MELLITUS
     Dosage: 16 U, BID
     Dates: start: 19700101

REACTIONS (22)
  - HEMIPARESIS [None]
  - ABNORMAL BEHAVIOUR [None]
  - BLOOD GLUCOSE INCREASED [None]
  - NAUSEA [None]
  - DRUG DOSE OMISSION [None]
  - PARAESTHESIA [None]
  - STENT PLACEMENT [None]
  - GLAUCOMA [None]
  - HYPERTENSION [None]
  - FEELING ABNORMAL [None]
  - BLOOD CHOLESTEROL INCREASED [None]
  - CEREBROVASCULAR ACCIDENT [None]
  - SPEECH DISORDER [None]
  - DIABETIC KETOACIDOSIS [None]
  - VERTIGO [None]
  - MEMORY IMPAIRMENT [None]
  - HYPOAESTHESIA [None]
  - TRANSIENT ISCHAEMIC ATTACK [None]
  - CORONARY ARTERY BYPASS [None]
  - ANGINA PECTORIS [None]
  - DYSARTHRIA [None]
  - BALANCE DISORDER [None]
